FAERS Safety Report 9345964 (Version 2)
Quarter: 2013Q3

REPORT INFORMATION
  Report Type: Spontaneous
  Country: US (occurrence: US)
  Receive Date: 20130613
  Receipt Date: 20130730
  Transmission Date: 20140515
  Serious: Yes (Other)
  Sender: FDA-Public Use
  Company Number: US-UCBSA-087908

PATIENT
  Sex: Male

DRUGS (1)
  1. KEPPRA XR [Suspect]
     Indication: CONVULSION
     Dosage: 500 MG 6/DAILY

REACTIONS (3)
  - Drug dependence [Recovering/Resolving]
  - Alcoholism [Recovering/Resolving]
  - Nicotine dependence [Recovering/Resolving]
